FAERS Safety Report 4292252-6 (Version None)
Quarter: 2004Q1

REPORT INFORMATION
  Report Type: 
  Country: None (occurrence: None)
  Receive Date: 20040211
  Receipt Date: 20031204
  Transmission Date: 20041129
  Serious: Yes (Disabling, Other)
  Sender: FDA-Public Use
  Company Number: FR-GLAXOSMITHKLINE-B0317528A

PATIENT
  Age: 45 Year
  Sex: Male
  Weight: 72 kg

DRUGS (6)
  1. SERETIDE [Suspect]
     Indication: ASTHMA
     Dosage: 500MCG TWICE PER DAY
     Route: 055
  2. AIROMIR [Suspect]
     Indication: ASTHMA
     Route: 055
  3. RHINOCORT [Suspect]
     Indication: NASAL POLYPS
     Route: 045
     Dates: start: 20030101
  4. SOLUPRED 20 [Suspect]
     Indication: NASAL POLYPS
     Route: 048
     Dates: start: 20030408
  5. NASONEX [Suspect]
     Route: 045
     Dates: start: 20030408
  6. SINGULAIR [Suspect]
     Indication: ASTHMA
     Route: 048

REACTIONS (2)
  - AGEUSIA [None]
  - ANOSMIA [None]
